FAERS Safety Report 12717478 (Version 8)
Quarter: 2018Q2

REPORT INFORMATION
  Report Type: Spontaneous
  Country: DE (occurrence: DE)
  Receive Date: 20160906
  Receipt Date: 20180601
  Transmission Date: 20180711
  Serious: Yes (Other)
  Sender: FDA-Public Use
  Company Number: DE-SUN PHARMACEUTICAL INDUSTRIES LTD-2016R1-122803

PATIENT
  Age: 65 Year
  Sex: Female

DRUGS (14)
  1. ONDANSETRON [Interacting]
     Active Substance: ONDANSETRON
     Indication: NAUSEA
     Dosage: UNK
     Route: 065
  2. VALPROIC ACID. [Interacting]
     Active Substance: VALPROIC ACID
     Indication: GLIOBLASTOMA MULTIFORME
     Dosage: UNKNOWN DOSE ()
     Route: 065
  3. CLOBAZAM [Interacting]
     Active Substance: CLOBAZAM
     Indication: PARTIAL SEIZURES
     Dosage: UNK
     Route: 065
  4. LEVETIRACETAM. [Suspect]
     Active Substance: LEVETIRACETAM
     Indication: PARTIAL SEIZURES
     Dosage: 1000 MG, DAILY (STARTING DOSE)
     Route: 065
  5. ONDANSETRON [Interacting]
     Active Substance: ONDANSETRON
     Indication: PROPHYLAXIS OF NAUSEA AND VOMITING
     Dosage: 8 MG, DAILY
     Route: 065
  6. LORAZEPAM. [Interacting]
     Active Substance: LORAZEPAM
     Indication: EPILEPSY
     Dosage: UNK
     Route: 065
  7. TEMOZOLOMIDE. [Suspect]
     Active Substance: TEMOZOLOMIDE
     Indication: PRODUCT USED FOR UNKNOWN INDICATION
     Dosage: 200 MG/M2/D/CYCLE, 5 DAYS ON, 23 DAYS OFF FOR SUBSEQUENT CYCLES
     Route: 065
  8. TEMOZOLOMIDE. [Interacting]
     Active Substance: TEMOZOLOMIDE
     Indication: GLIOBLASTOMA MULTIFORME
     Dosage: 50 MG/M2, DAILY
     Route: 048
  9. LEVETIRACETAM. [Interacting]
     Active Substance: LEVETIRACETAM
     Indication: EPILEPSY
     Dosage: 2750 MG, DAILY
     Route: 065
  10. COPTIS-KUSH DECOCT [Suspect]
     Active Substance: HERBALS
     Indication: PRODUCT USED FOR UNKNOWN INDICATION
     Dosage: 20 DOSES
     Route: 065
  11. CLOBAZAM [Interacting]
     Active Substance: CLOBAZAM
     Indication: EPILEPSY
     Dosage: 5 MG/D P.R.N
     Route: 065
  12. LORAZEPAM. [Interacting]
     Active Substance: LORAZEPAM
     Indication: PARTIAL SEIZURES
     Dosage: 1 MG, DAILY (AS REQUIRED)
     Route: 065
  13. ARTESUNATE [Interacting]
     Active Substance: ARTESUNATE
     Indication: GLIOBLASTOMA MULTIFORME
     Dosage: 200 MG, DAILY
     Route: 065
     Dates: start: 20150920, end: 20151020
  14. TEMOZOLOMIDE. [Suspect]
     Active Substance: TEMOZOLOMIDE
     Dosage: 150 MG/M2/D/CYCLE, 5 DAYS ON, 23 DAYS OFF FOR FIRST TWO CYCLES ()
     Route: 065

REACTIONS (7)
  - Overdose [Unknown]
  - Hepatotoxicity [Recovered/Resolved]
  - Weight decreased [Recovered/Resolved]
  - Condition aggravated [Recovered/Resolved]
  - Product use in unapproved indication [Unknown]
  - Drug interaction [Recovered/Resolved]
  - Depressed mood [Recovered/Resolved]

NARRATIVE: CASE EVENT DATE: 201509
